FAERS Safety Report 16514339 (Version 1)
Quarter: 2019Q3

REPORT INFORMATION
  Report Type: Spontaneous
  Country: US (occurrence: US)
  Receive Date: 20190702
  Receipt Date: 20190702
  Transmission Date: 20191004
  Serious: Yes (Hospitalization, Other)
  Sender: FDA-Public Use
  Company Number: US-UNITED THERAPEUTICS-UNT-2019-011051

PATIENT
  Age: 72 Year
  Sex: Female

DRUGS (1)
  1. REMODULIN [Suspect]
     Active Substance: TREPROSTINIL
     Indication: PULMONARY ARTERIAL HYPERTENSION
     Dosage: 0.020 ?G/KG, CONTINUING
     Route: 041

REACTIONS (5)
  - Rubber sensitivity [Unknown]
  - Urinary retention [Unknown]
  - Catheter site related reaction [Unknown]
  - Urinary tract inflammation [Unknown]
  - Renal injury [Unknown]

NARRATIVE: CASE EVENT DATE: 201906
